FAERS Safety Report 7102441-0 (Version None)
Quarter: 2010Q4

REPORT INFORMATION
  Report Type: 
  Country: None (occurrence: None)
  Receive Date: 20101115
  Receipt Date: 20101108
  Transmission Date: 20110411
  Serious: No
  Sender: FDA-Public Use
  Company Number: US-BIOGENIDEC-2010BI038907

PATIENT
  Age: 64 Year
  Sex: Female

DRUGS (2)
  1. AVONEX [Suspect]
     Indication: MULTIPLE SCLEROSIS
     Route: 030
     Dates: start: 20000608, end: 20031103
  2. AVONEX [Suspect]
     Route: 030
     Dates: start: 20031103

REACTIONS (2)
  - INJECTION SITE DISCOMFORT [None]
  - INJECTION SITE MASS [None]
